FAERS Safety Report 23528461 (Version 2)
Quarter: 2024Q1

REPORT INFORMATION
  Report Type: Report from Study
  Country: CH (occurrence: CH)
  Receive Date: 20240215
  Receipt Date: 20240321
  Transmission Date: 20240410
  Serious: No
  Sender: FDA-Public Use
  Company Number: CH-BIOGEN-2024BI01249807

PATIENT
  Age: 75 Year
  Sex: Female

DRUGS (2)
  1. ADUHELM [Suspect]
     Active Substance: ADUCANUMAB-AVWA
     Indication: Dementia Alzheimer^s type
     Route: 050
     Dates: start: 20231215, end: 20240111
  2. ATORVASTATIN [Concomitant]
     Active Substance: ATORVASTATIN
     Indication: Product used for unknown indication
     Route: 050
     Dates: start: 2015

REACTIONS (1)
  - Amyloid related imaging abnormality-microhaemorrhages and haemosiderin deposits [Unknown]

NARRATIVE: CASE EVENT DATE: 20240131
